FAERS Safety Report 23132063 (Version 3)
Quarter: 2024Q1

REPORT INFORMATION
  Report Type: Report from Study
  Country: US (occurrence: US)
  Receive Date: 20231101
  Receipt Date: 20240129
  Transmission Date: 20240410
  Serious: No
  Sender: FDA-Public Use
  Company Number: US-ACADIA PHARMACEUTICALS INC.-ACA-2023-TRF-004568

PATIENT
  Sex: Female

DRUGS (17)
  1. DAYBUE [Suspect]
     Active Substance: TROFINETIDE
     Indication: Rett syndrome
     Dosage: 50 MILLILITER, BID
  2. DAYBUE [Suspect]
     Active Substance: TROFINETIDE
     Dosage: 50 MILLILITER, BID
  3. VITAMINS [Suspect]
     Active Substance: VITAMINS
  4. IMODIUM [Suspect]
     Active Substance: LOPERAMIDE HYDROCHLORIDE
  5. ACETAMINOPHEN [Concomitant]
     Active Substance: ACETAMINOPHEN
     Dosage: 325MG ORAL/G-TUBE
  6. ASCORBIC ACID [Concomitant]
     Active Substance: ASCORBIC ACID
     Dosage: 500MG, ORAL, DAILY
     Route: 048
  7. BACLOFEN [Concomitant]
     Active Substance: BACLOFEN
     Dosage: 20 MILLIGRAM, G-TUBE, BID
     Dates: start: 20230831
  8. CHOLECALCIFEROL [Concomitant]
     Active Substance: CHOLECALCIFEROL
     Dosage: 5000 IU, QD
     Dates: start: 20191014
  9. CLONAZEPAM [Concomitant]
     Active Substance: CLONAZEPAM
     Indication: Seizure
     Dosage: 0.5 MG, G-TUBE
     Dates: start: 20230831
  10. ESOMEPRAZOLE [Concomitant]
     Active Substance: ESOMEPRAZOLE
     Dosage: TAKE 40MG (2 PACKETS) Q AM PO BEFORE BREAKFAST, 20 MG (1PACKET) BEFORE EVENING MEAL
     Dates: start: 20230626
  11. FAMOTIDINE [Concomitant]
     Active Substance: FAMOTIDINE
     Dosage: 1 TABLET (40 MG), ORAL, QD
     Dates: start: 20221101
  12. VITAMINS [Concomitant]
     Active Substance: VITAMINS
     Dosage: 1 TABLET, G-TUBE
  13. MUPIROCIN [Concomitant]
     Active Substance: MUPIROCIN
     Dosage: 2 % (APPLY TOPICALLY), TID
     Dates: start: 20210318
  14. NAPROXEN [Concomitant]
     Active Substance: NAPROXEN
     Dosage: 5ML (125MG) BY ORAL, QD
     Dates: start: 20230831
  15. OXCARBAZEPINE [Concomitant]
     Active Substance: OXCARBAZEPINE
     Dosage: 4ML IN AM AND 5ML IN PM
     Dates: start: 20230831
  16. GLYCOLAX [Concomitant]
     Active Substance: POLYETHYLENE GLYCOL 3350
     Dosage: 8.5 GRAM, ORAL, QD
     Dates: start: 20220405
  17. TRANSDERM SCOP [Concomitant]
     Active Substance: SCOPOLAMINE
     Dosage: 1 MG OVER 3DAYS, TRANSDERMAL
     Dates: start: 20230831

REACTIONS (11)
  - Weight increased [Recovered/Resolved]
  - Drooling [Unknown]
  - Product dose omission issue [Recovered/Resolved]
  - Speech disorder [Unknown]
  - Bruxism [Unknown]
  - Weight increased [Unknown]
  - Constipation [Unknown]
  - Alanine aminotransferase increased [Recovered/Resolved]
  - Aspartate aminotransferase increased [Recovered/Resolved]
  - Diarrhoea [Not Recovered/Not Resolved]
  - Diarrhoea [Unknown]

NARRATIVE: CASE EVENT DATE: 20210101
